FAERS Safety Report 13268024 (Version 1)
Quarter: 2017Q1

REPORT INFORMATION
  Report Type: Spontaneous
  Country: US (occurrence: US)
  Receive Date: 20170224
  Receipt Date: 20170224
  Transmission Date: 20170428
  Serious: Yes (Life-Threatening, Disabling, Other)
  Sender: FDA-Public Use
  Company Number: None

PATIENT
  Age: 32 Year
  Sex: Female
  Weight: 74.7 kg

DRUGS (3)
  1. KEPPRA XR [Concomitant]
     Active Substance: LEVETIRACETAM
  2. REGLAN [Suspect]
     Active Substance: METOCLOPRAMIDE HYDROCHLORIDE
     Indication: LACTATION DISORDER
     Dosage: ?          QUANTITY:6 TABLET(S);?
     Route: 048
     Dates: start: 20170110, end: 20170114
  3. ZYRTEC [Concomitant]
     Active Substance: CETIRIZINE HYDROCHLORIDE

REACTIONS (4)
  - Palpitations [None]
  - Dystonia [None]
  - Anxiety [None]
  - Parkinsonism [None]

NARRATIVE: CASE EVENT DATE: 20170114
